FAERS Safety Report 11398572 (Version 1)
Quarter: 2015Q3

REPORT INFORMATION
  Report Type: Report from Study
  Country: CA (occurrence: None)
  Receive Date: 20150818
  Receipt Date: 20150818
  Transmission Date: 20151125
  Serious: Yes (Other)
  Sender: FDA-Public Use
  Company Number: CA-2015VAL000516

PATIENT
  Age: 70 Year
  Sex: Male

DRUGS (2)
  1. METOPROLOL TARTRATE (METOPROLOL TARTRATE) UNKNOWN [Suspect]
     Active Substance: METOPROLOL TARTRATE
     Indication: PANCREATIC NEUROENDOCRINE TUMOUR METASTATIC
     Route: 048
  2. SANDOSTATIN LAR DEPOT [Suspect]
     Active Substance: OCTREOTIDE ACETATE
     Indication: PANCREATIC NEUROENDOCRINE TUMOUR METASTATIC
     Route: 030
     Dates: start: 20131224

REACTIONS (12)
  - Hepatic neoplasm [None]
  - Cough [None]
  - Rhinorrhoea [None]
  - Malignant neoplasm progression [None]
  - Malaise [None]
  - Blood glucose decreased [None]
  - Neoplasm [None]
  - Hypertension [None]
  - Glycosylated haemoglobin increased [None]
  - Blood glucose increased [None]
  - Nasopharyngitis [None]
  - Injection site pain [None]

NARRATIVE: CASE EVENT DATE: 20131224
